FAERS Safety Report 11079253 (Version 2)
Quarter: 2015Q2

REPORT INFORMATION
  Report Type: Report from Study
  Country: VE (occurrence: VE)
  Receive Date: 20150430
  Receipt Date: 20150505
  Transmission Date: 20150821
  Serious: Yes (Hospitalization, Other)
  Sender: FDA-Public Use
  Company Number: PHHY2015VE051889

PATIENT
  Age: 81 Year
  Sex: Male
  Weight: 20 kg

DRUGS (6)
  1. ZALDIAR [Concomitant]
     Active Substance: ACETAMINOPHEN\TRAMADOL HYDROCHLORIDE
     Indication: PAIN
     Dosage: 3.5 MG, QD
     Route: 065
     Dates: start: 2014
  2. TAMSULON [Concomitant]
     Indication: HYPERTENSION
     Route: 065
  3. ZOMETA [Suspect]
     Active Substance: ZOLEDRONIC ACID
     Indication: METASTASES TO BONE
     Dosage: 4 MG, EVERY 21 DAYS
     Route: 042
     Dates: start: 2014, end: 2014
  4. ZIAC [Concomitant]
     Active Substance: BISOPROLOL FUMARATE\HYDROCHLOROTHIAZIDE
     Indication: HYPERTENSION
     Route: 065
  5. ETACONIL [Concomitant]
     Indication: PROSTATE CANCER
     Dosage: 250 MG, QD
     Route: 065
     Dates: start: 2014
  6. ZOMETA [Suspect]
     Active Substance: ZOLEDRONIC ACID
     Dosage: 4 MG, EVERY 28 DAYS
     Route: 065

REACTIONS (17)
  - Constipation [Recovering/Resolving]
  - Haematuria [Recovering/Resolving]
  - Prescribed overdose [Unknown]
  - Abdominal distension [Unknown]
  - Hypoacusis [Unknown]
  - Faecaloma [Recovering/Resolving]
  - Loss of consciousness [Recovering/Resolving]
  - Toxicity to various agents [Unknown]
  - Blood calcium decreased [Recovering/Resolving]
  - Fall [Unknown]
  - Pain [Recovered/Resolved]
  - Gastric dilatation [Recovering/Resolving]
  - Arthralgia [Unknown]
  - Dyspepsia [Recovering/Resolving]
  - Procedural complication [Unknown]
  - Chikungunya virus infection [Unknown]
  - Blood sodium decreased [Recovering/Resolving]

NARRATIVE: CASE EVENT DATE: 201412
